FAERS Safety Report 22090290 (Version 7)
Quarter: 2023Q2

REPORT INFORMATION
  Report Type: Spontaneous
  Country: GB (occurrence: GB)
  Receive Date: 20230313
  Receipt Date: 20230605
  Transmission Date: 20230722
  Serious: Yes (Other)
  Sender: FDA-Public Use
  Company Number: GB-MYLANLABS-2023M1015424

PATIENT
  Age: 63 Year
  Sex: Female

DRUGS (51)
  1. BISOPROLOL [Suspect]
     Active Substance: BISOPROLOL
     Indication: Product used for unknown indication
     Dosage: 3.75 MG, QD (OM)
     Route: 048
  2. RAMIPRIL [Suspect]
     Active Substance: RAMIPRIL
     Indication: Product used for unknown indication
     Dosage: 1.25 MG, QD (ON)
     Route: 048
  3. METFORMIN [Suspect]
     Active Substance: METFORMIN HYDROCHLORIDE
     Indication: Product used for unknown indication
     Dosage: 500 MG, QD (OM)
     Route: 048
  4. PREGABALIN [Suspect]
     Active Substance: PREGABALIN
     Indication: Product used for unknown indication
     Dosage: 25 MG, BID, 2 SEPARATED DOSES
     Route: 048
  5. OMEPRAZOLE [Suspect]
     Active Substance: OMEPRAZOLE
     Indication: Product used for unknown indication
     Dosage: 40 MG, QD (OM)
     Route: 048
  6. ATORVASTATIN [Suspect]
     Active Substance: ATORVASTATIN
     Indication: Type 2 diabetes mellitus
     Dosage: UNK
     Route: 065
  7. ATORVASTATIN [Suspect]
     Active Substance: ATORVASTATIN
     Dosage: 80 MG, QD
     Route: 048
  8. ATORVASTATIN [Suspect]
     Active Substance: ATORVASTATIN
     Dosage: 75 UG, QD (OM)
     Route: 050
  9. ATORVASTATIN [Suspect]
     Active Substance: ATORVASTATIN
     Dosage: 300 UG, QD
     Route: 050
  10. ATORVASTATIN [Suspect]
     Active Substance: ATORVASTATIN
     Dosage: 75 MG, QD (OM)
     Route: 050
  11. ATORVASTATIN [Suspect]
     Active Substance: ATORVASTATIN
     Dosage: 50 MG, QD 2 SEPARATED DOSES
     Route: 050
  12. ATORVASTATIN [Suspect]
     Active Substance: ATORVASTATIN
     Dosage: 40 MG, QD (OM)
     Route: 050
  13. ATORVASTATIN [Suspect]
     Active Substance: ATORVASTATIN
     Dosage: 180 MG, QD (90 MILLIGRAM, BID 2 SEPARATED DOSES)
     Route: 050
  14. ATORVASTATIN [Suspect]
     Active Substance: ATORVASTATIN
     Dosage: 80 MG, QD (ON)
     Route: 050
  15. ATORVASTATIN [Suspect]
     Active Substance: ATORVASTATIN
     Dosage: 3.75 MG, QD (OM)
     Route: 050
  16. ATORVASTATIN [Suspect]
     Active Substance: ATORVASTATIN
     Dosage: 500 MG, QD (OM)
     Route: 050
  17. ATORVASTATIN [Suspect]
     Active Substance: ATORVASTATIN
     Dosage: 5 MG, QD (OM)
     Route: 050
  18. ATORVASTATIN [Suspect]
     Active Substance: ATORVASTATIN
     Dosage: 1.25 MG, QD (ON)
     Route: 050
  19. ATORVASTATIN [Suspect]
     Active Substance: ATORVASTATIN
     Route: 065
  20. ATORVASTATIN [Suspect]
     Active Substance: ATORVASTATIN
     Dosage: 4 DOSAGE FORM (2 DOSAGE FORM, BID (2 SACHET IN WATER, ORAL POWDER))
     Route: 050
  21. ATORVASTATIN [Suspect]
     Active Substance: ATORVASTATIN
     Dosage: 60 MG, QD (ON)
     Route: 050
  22. ATORVASTATIN [Suspect]
     Active Substance: ATORVASTATIN
     Dosage: 0.5 PERCENT, QID 4 SEPARATED DOSES
     Route: 050
  23. ATORVASTATIN [Suspect]
     Active Substance: ATORVASTATIN
     Dosage: UNK
     Route: 065
  24. ATORVASTATIN [Suspect]
     Active Substance: ATORVASTATIN
     Dosage: 500 MG, QD (OM)
     Route: 065
  25. ATORVASTATIN [Suspect]
     Active Substance: ATORVASTATIN
     Dosage: 90 MG, BID (2 SEPARATED DOSES)
     Route: 065
  26. ATORVASTATIN [Suspect]
     Active Substance: ATORVASTATIN
     Dosage: 3.75 MG, QD (OM)
     Route: 065
  27. ATORVASTATIN [Suspect]
     Active Substance: ATORVASTATIN
     Dosage: 25 MG, BID (2 SEPARATED DOSES)
     Route: 065
  28. ATORVASTATIN [Suspect]
     Active Substance: ATORVASTATIN
     Dosage: 60 MG, QD (ON)
     Route: 065
  29. ATORVASTATIN [Suspect]
     Active Substance: ATORVASTATIN
     Dosage: 75 UG, QD (OM)
     Route: 065
  30. ATORVASTATIN [Suspect]
     Active Substance: ATORVASTATIN
     Dosage: 2 DOSAGE FORM, BID 2 SACHET IN WATER, ORAL POWDER)
     Route: 048
  31. ATORVASTATIN [Suspect]
     Active Substance: ATORVASTATIN
     Dosage: 80 MG, QD (ON)
     Route: 048
  32. ATORVASTATIN [Suspect]
     Active Substance: ATORVASTATIN
     Dosage: 75 MG, QD (OM)
     Route: 065
  33. ATORVASTATIN [Suspect]
     Active Substance: ATORVASTATIN
     Dosage: 300 UG, QD
     Route: 065
  34. ATORVASTATIN [Suspect]
     Active Substance: ATORVASTATIN
     Dosage: 40 MG, QD (OM)
     Route: 065
  35. ATORVASTATIN [Suspect]
     Active Substance: ATORVASTATIN
     Dosage: UNK MG, QD (ON)
     Route: 065
  36. ATORVASTATIN [Suspect]
     Active Substance: ATORVASTATIN
     Dosage: 5 MG, QD (OM)
     Route: 065
  37. ATORVASTATIN [Suspect]
     Active Substance: ATORVASTATIN
     Dosage: 0.5 %, QID (4 SEPARATED DOSES)
     Route: 065
  38. ASPIRIN [Suspect]
     Active Substance: ASPIRIN
     Indication: Product used for unknown indication
     Dosage: 75 MG, QD
     Route: 048
  39. ASPIRIN [Suspect]
     Active Substance: ASPIRIN
     Dosage: 75 MG
     Route: 065
  40. CARBOXYMETHYLCELLULOSE [Suspect]
     Active Substance: CARBOXYMETHYLCELLULOSE
     Indication: Product used for unknown indication
     Dosage: 0.5 PERCENT, QID, 4 SEPARATED DOSES
     Route: 047
  41. CLOZARIL [Suspect]
     Active Substance: CLOZAPINE
     Indication: Schizophrenia
     Dosage: UNK
     Route: 048
     Dates: start: 20040112
  42. DULOXETINE [Suspect]
     Active Substance: DULOXETINE
     Indication: Product used for unknown indication
     Dosage: 60 MG, QD (ON)
     Route: 048
  43. FOLIC ACID [Suspect]
     Active Substance: FOLIC ACID
     Indication: Product used for unknown indication
     Dosage: 5 MG, QD (OM)
     Route: 048
  44. SCOPOLAMINE HYDROBROMIDE [Suspect]
     Active Substance: SCOPOLAMINE HYDROBROMIDE
     Indication: Product used for unknown indication
     Dosage: 300 UG, QD
     Route: 048
  45. INCRUSE ELLIPTA [Suspect]
     Active Substance: UMECLIDINIUM BROMIDE
     Indication: Product used for unknown indication
     Dosage: 55 UG, QD
     Route: 055
  46. LEVOTHYROXINE [Suspect]
     Active Substance: LEVOTHYROXINE
     Indication: Product used for unknown indication
     Dosage: 75 UG, QD (OM)
     Route: 048
  47. POLYETHYLENE GLYCOLS [Suspect]
     Active Substance: POLYETHYLENE GLYCOLS
     Indication: Product used for unknown indication
     Dosage: 2 DOSAGE FORM, BID (2 SACHET IN WATER, ORAL POWDER)
     Route: 048
  48. FLUTICASONE FUROATE\VILANTEROL TRIFENATATE [Suspect]
     Active Substance: FLUTICASONE FUROATE\VILANTEROL TRIFENATATE
     Indication: Product used for unknown indication
     Dosage: 1 DOSAGE FORM, QD
     Route: 055
  49. ALBUTEROL [Suspect]
     Active Substance: ALBUTEROL
     Indication: Product used for unknown indication
     Dosage: 2 DOSAGE FORM, QID, 4 SEPARATED DOSES
     Route: 055
  50. TICAGRELOR [Suspect]
     Active Substance: TICAGRELOR
     Indication: Product used for unknown indication
     Dosage: 90 MG, BID, 2 SEPERATED DOSE
     Route: 048
  51. ASPIRIN [Suspect]
     Active Substance: ASPIRIN
     Indication: Product used for unknown indication
     Dosage: 75 MG, QD, (OM)
     Route: 048

REACTIONS (5)
  - Progressive multiple sclerosis [Unknown]
  - Myocardial infarction [Unknown]
  - High density lipoprotein decreased [Not Recovered/Not Resolved]
  - Red cell distribution width increased [Recovering/Resolving]
  - Blood triglycerides increased [Recovering/Resolving]

NARRATIVE: CASE EVENT DATE: 20110101
